FAERS Safety Report 7564821-9 (Version None)
Quarter: 2011Q2

REPORT INFORMATION
  Report Type: 
  Country: None (occurrence: None)
  Receive Date: 20110622
  Receipt Date: 20101215
  Transmission Date: 20111010
  Serious: Yes (Death)
  Sender: FDA-Public Use
  Company Number: US-MYLANLABS-2010S1023045

PATIENT
  Age: 52 Year
  Sex: Male

DRUGS (9)
  1. CLOZAPINE [Suspect]
     Route: 048
  2. CLOZAPINE [Suspect]
     Route: 048
  3. NEXIUM [Concomitant]
  4. MIRALAX [Concomitant]
  5. CELEXA [Concomitant]
  6. GLIPIZIDE [Concomitant]
  7. KLONOPIN [Concomitant]
  8. DEPAKOTE ER [Concomitant]
  9. ZOCOR [Concomitant]

REACTIONS (1)
  - DEATH [None]
